FAERS Safety Report 7818303-7 (Version None)
Quarter: 2011Q4

REPORT INFORMATION
  Report Type: 
  Country: None (occurrence: None)
  Receive Date: 20111017
  Receipt Date: 20111007
  Transmission Date: 20120403
  Serious: Yes (Death)
  Sender: FDA-Public Use
  Company Number: US-CELGENEUS-163-21880-11082339

PATIENT
  Sex: Male

DRUGS (8)
  1. REVLIMID [Suspect]
     Dosage: 5 MILLIGRAM
     Route: 048
     Dates: start: 20110601
  2. NEXIUM [Concomitant]
     Dosage: 40 MILLIGRAM
     Route: 065
  3. OXYCONTIN [Concomitant]
     Dosage: 5 MILLIGRAM
     Route: 065
  4. REVLIMID [Suspect]
     Dosage: 1.6667 MILLIGRAM
     Route: 048
     Dates: start: 20110801
  5. REVLIMID [Suspect]
     Indication: MULTIPLE MYELOMA
     Dosage: 5 MILLIGRAM
     Route: 048
     Dates: start: 20100621
  6. ASPIRIN [Concomitant]
     Dosage: 81 MILLIGRAM
     Route: 065
  7. DOXYCYCLINE [Concomitant]
     Dosage: 100 MILLIGRAM
     Route: 065
  8. VELCADE [Concomitant]
     Indication: MULTIPLE MYELOMA
     Route: 065

REACTIONS (1)
  - CARDIO-RESPIRATORY ARREST [None]
